FAERS Safety Report 10426751 (Version 2)
Quarter: 2014Q3

REPORT INFORMATION
  Report Type: Report from Study
  Country: CN (occurrence: CN)
  Receive Date: 20140903
  Receipt Date: 20140903
  Transmission Date: 20150326
  Serious: Yes (Death, Other)
  Sender: FDA-Public Use
  Company Number: CN-ASTELLAS-2014US009941

PATIENT
  Sex: Male

DRUGS (1)
  1. ERLOTINIB [Suspect]
     Active Substance: ERLOTINIB
     Indication: NON-SMALL CELL LUNG CANCER
     Route: 048
     Dates: start: 20130728

REACTIONS (6)
  - Dizziness [Unknown]
  - Malignant neoplasm progression [Fatal]
  - Diabetes mellitus [Fatal]
  - Cardiac disorder [Fatal]
  - Haemoptysis [Unknown]
  - Hypertension [Unknown]
